FAERS Safety Report 4987252-4 (Version None)
Quarter: 2006Q2

REPORT INFORMATION
  Report Type: 
  Country: None (occurrence: None)
  Receive Date: 20060501
  Receipt Date: 20051013
  Transmission Date: 20061013
  Serious: Yes (Death, Hospitalization, Disabling, Other)
  Sender: FDA-Public Use
  Company Number: PR-MERCK-0510USA07399

PATIENT
  Age: 48 Year
  Sex: Male
  Weight: 97 kg

DRUGS (4)
  1. VIOXX [Suspect]
     Indication: BACK PAIN
     Route: 048
     Dates: start: 19980101, end: 20020701
  2. CELEBREX [Suspect]
     Route: 065
  3. BEXTRA [Suspect]
     Route: 065
  4. NAPROSYN [Suspect]
     Route: 065

REACTIONS (10)
  - ABDOMINAL PAIN [None]
  - ANGINA PECTORIS [None]
  - BACK INJURY [None]
  - CORONARY ARTERY DISEASE [None]
  - CORONARY ARTERY OCCLUSION [None]
  - HAEMORRHAGIC CEREBRAL INFARCTION [None]
  - HYPERLIPIDAEMIA [None]
  - HYPERTENSIVE CRISIS [None]
  - MYOCARDIAL INFARCTION [None]
  - PNEUMONIA [None]
